FAERS Safety Report 5857119-8 (Version None)
Quarter: 2008Q3

REPORT INFORMATION
  Report Type: 
  Country: None (occurrence: None)
  Receive Date: 20080818
  Receipt Date: 20080506
  Transmission Date: 20090109
  Serious: No
  Sender: FDA-Public Use
  Company Number: WAES 0805USA01025

PATIENT
  Age: 62 Year
  Sex: Female
  Weight: 113.3993 kg

DRUGS (5)
  1. JANUVIA [Suspect]
     Indication: TYPE 2 DIABETES MELLITUS
     Dosage: 100 MG/DAILY/PO
     Route: 048
     Dates: start: 20071201, end: 20080301
  2. AVANDIA [Concomitant]
  3. STARLIX [Concomitant]
  4. SYNTHROID [Concomitant]
  5. CALCIUM (UNSPECIFIED) [Concomitant]

REACTIONS (1)
  - MUSCLE SPASMS [None]
